FAERS Safety Report 24062271 (Version 1)
Quarter: 2024Q3

REPORT INFORMATION
  Report Type: Spontaneous
  Country: US (occurrence: US)
  Receive Date: 20240708
  Receipt Date: 20240708
  Transmission Date: 20241016
  Serious: No
  Sender: CHEMISCHE FABRIK KREUSSLER
  Company Number: nICSR066

PATIENT
  Sex: 0

DRUGS (2)
  1. ASCLERA [Suspect]
     Active Substance: POLIDOCANOL
     Indication: Product used for unknown indication
  2. UNSPECIFIED INGREDIENT [Suspect]
     Active Substance: UNSPECIFIED INGREDIENT

REACTIONS (3)
  - Blister [Unknown]
  - Skin exfoliation [Unknown]
  - Drug interaction [Unknown]
